FAERS Safety Report 7675574-8 (Version None)
Quarter: 2011Q3

REPORT INFORMATION
  Report Type: 
  Country: None (occurrence: None)
  Receive Date: 20110810
  Receipt Date: 20110803
  Transmission Date: 20111222
  Serious: Yes (Other)
  Sender: FDA-Public Use
  Company Number: PHHY2011TW54767

PATIENT
  Sex: Female
  Weight: 50 kg

DRUGS (2)
  1. DICLOFENAC SODIUM [Suspect]
     Dosage: UNK
     Dates: start: 20110617, end: 20110618
  2. ZOLEDRONOC ACID [Suspect]
     Dosage: UNK
     Route: 042
     Dates: start: 20110617, end: 20110617

REACTIONS (6)
  - MYALGIA [None]
  - RASH PRURITIC [None]
  - ABDOMINAL PAIN LOWER [None]
  - ARTHRALGIA [None]
  - DERMATITIS ALLERGIC [None]
  - RASH [None]
